FAERS Safety Report 17120627 (Version 1)
Quarter: 2019Q4

REPORT INFORMATION
  Report Type: Spontaneous
  Country: US (occurrence: US)
  Receive Date: 20191206
  Receipt Date: 20191206
  Transmission Date: 20200122
  Serious: Yes (Hospitalization, Other)
  Sender: FDA-Public Use
  Company Number: US-MYLANLABS-2019M1119181

PATIENT
  Age: 12 Year
  Sex: Male

DRUGS (5)
  1. PRAMIPEXOLE. [Suspect]
     Active Substance: PRAMIPEXOLE
     Indication: PARKINSONISM
     Route: 065
  2. CARBIDOPA/LEVODOPA [Suspect]
     Active Substance: CARBIDOPA\LEVODOPA
     Indication: PARKINSONISM
     Route: 065
  3. ROTIGOTINE [Suspect]
     Active Substance: ROTIGOTINE
     Indication: PARKINSONISM
     Dosage: DERMAL PATCH.
     Route: 062
  4. ROPINIROLE. [Suspect]
     Active Substance: ROPINIROLE
     Indication: PARKINSONISM
     Route: 065
  5. AMANTADINE. [Suspect]
     Active Substance: AMANTADINE HYDROCHLORIDE
     Indication: PARKINSONISM
     Route: 065

REACTIONS (8)
  - Psychotic disorder [Recovering/Resolving]
  - Hallucination [Recovering/Resolving]
  - On and off phenomenon [Recovering/Resolving]
  - Mobility decreased [Unknown]
  - Fall [Unknown]
  - Dystonia [Recovering/Resolving]
  - Dyskinesia [Recovering/Resolving]
  - Rapid eye movements sleep abnormal [Unknown]
